FAERS Safety Report 13892655 (Version 1)
Quarter: 2017Q3

REPORT INFORMATION
  Report Type: Spontaneous
  Country: US (occurrence: US)
  Receive Date: 20170822
  Receipt Date: 20170822
  Transmission Date: 20171127
  Serious: No
  Sender: FDA-Public Use
  Company Number: GXBR2017US002054

PATIENT
  Age: 39 Year
  Sex: Male
  Weight: 117.91 kg

DRUGS (1)
  1. SWIM-EAR [Suspect]
     Active Substance: ISOPROPYL ALCOHOL
     Indication: EAR DISORDER
     Dosage: 1 DF, QD (BOTH EARS)
     Route: 001
     Dates: start: 20170622

REACTIONS (2)
  - Expired product administered [Unknown]
  - Ear discomfort [Not Recovered/Not Resolved]

NARRATIVE: CASE EVENT DATE: 20170622
